FAERS Safety Report 7486051-1 (Version None)
Quarter: 2011Q2

REPORT INFORMATION
  Report Type: 
  Country: None (occurrence: None)
  Receive Date: 20110517
  Receipt Date: 20110330
  Transmission Date: 20111010
  Serious: No
  Sender: FDA-Public Use
  Company Number: US-NOVEN-11US002160

PATIENT
  Sex: Male
  Weight: 25.397 kg

DRUGS (2)
  1. DAYTRANA [Suspect]
     Indication: ATTENTION DEFICIT/HYPERACTIVITY DISORDER
     Dosage: 30 MG/9 HOURS, MON-FRI
     Route: 062
     Dates: start: 20110301, end: 20110301
  2. DAYTRANA [Suspect]
     Dosage: 15 MG/9 HOURS
     Route: 062
     Dates: start: 20110328

REACTIONS (8)
  - FEELING ABNORMAL [None]
  - OROPHARYNGEAL PAIN [None]
  - NERVOUSNESS [None]
  - PRODUCT QUALITY ISSUE [None]
  - SLEEP TERROR [None]
  - ABDOMINAL PAIN UPPER [None]
  - DECREASED APPETITE [None]
  - AGITATION [None]
